FAERS Safety Report 12271069 (Version 1)
Quarter: 2016Q2

REPORT INFORMATION
  Report Type: Spontaneous
  Country: US (occurrence: None)
  Receive Date: 20160414
  Receipt Date: 20160414
  Transmission Date: 20160815
  Serious: Yes (Hospitalization)
  Sender: FDA-Public Use
  Company Number: None

PATIENT
  Age: 39 Year
  Sex: Female
  Weight: 72 kg

DRUGS (3)
  1. TANZEUM [Suspect]
     Active Substance: ALBIGLUTIDE
     Indication: DIABETES MELLITUS
     Route: 058
     Dates: start: 20160404, end: 20160410
  2. ESTRADIOL. [Concomitant]
     Active Substance: ESTRADIOL
  3. LEXAPRO [Concomitant]
     Active Substance: ESCITALOPRAM OXALATE

REACTIONS (4)
  - No therapeutic response [None]
  - Haematemesis [None]
  - Diarrhoea haemorrhagic [None]
  - Nausea [None]

NARRATIVE: CASE EVENT DATE: 20160413
